FAERS Safety Report 9699553 (Version 3)
Quarter: 2014Q1

REPORT INFORMATION
  Report Type: Spontaneous
  Country: DE (occurrence: DE)
  Receive Date: 20131120
  Receipt Date: 20140211
  Transmission Date: 20141002
  Serious: Yes (Life-Threatening, Hospitalization)
  Sender: FDA-Public Use
  Company Number: DE-UCBSA-103421

PATIENT
  Age: 76 Year
  Sex: Female

DRUGS (6)
  1. VIMPAT [Suspect]
     Indication: EPILEPSY
     Route: 048
     Dates: start: 201306, end: 20130918
  2. VIMPAT [Suspect]
     Indication: EPILEPSY
     Dosage: LOWER DOSAGE
     Route: 048
  3. KEPPRA [Suspect]
     Indication: EPILEPSY
     Route: 048
     Dates: start: 201203
  4. LAMOTRIGIN [Concomitant]
  5. AMLODIPIN [Concomitant]
     Indication: HYPERTENSION
     Route: 048
  6. VALSARTAN [Concomitant]
     Indication: HYPERTENSION
     Route: 048

REACTIONS (3)
  - Bradycardia [Recovered/Resolved]
  - Sinoatrial block [Recovered/Resolved]
  - Drug ineffective [Unknown]
